APPROVED DRUG PRODUCT: TOTACILLIN
Active Ingredient: AMPICILLIN/AMPICILLIN TRIHYDRATE
Strength: EQ 250MG BASE/5ML
Dosage Form/Route: FOR SUSPENSION;ORAL
Application: A062223 | Product #002
Applicant: GLAXOSMITHKLINE
Approved: Approved Prior to Jan 1, 1982 | RLD: No | RS: No | Type: DISCN